FAERS Safety Report 17678293 (Version 1)
Quarter: 2020Q2

REPORT INFORMATION
  Report Type: Spontaneous
  Country: US (occurrence: US)
  Receive Date: 20200417
  Receipt Date: 20200417
  Transmission Date: 20200714
  Serious: Yes (Other)
  Sender: FDA-Public Use
  Company Number: US-SUN PHARMACEUTICAL INDUSTRIES LTD-2020R1-243788

PATIENT
  Sex: Male

DRUGS (1)
  1. BACTRIM [Suspect]
     Active Substance: SULFAMETHOXAZOLE\TRIMETHOPRIM
     Indication: SKIN INFECTION
     Dosage: UNK

REACTIONS (6)
  - Skin disorder [Unknown]
  - Diarrhoea [Unknown]
  - Atrial fibrillation [Unknown]
  - Gastric disorder [Unknown]
  - Haemolysis [Unknown]
  - Pyrexia [Unknown]
